FAERS Safety Report 19128594 (Version 2)
Quarter: 2021Q2

REPORT INFORMATION
  Report Type: Spontaneous
  Country: US (occurrence: US)
  Receive Date: 20210413
  Receipt Date: 20210413
  Transmission Date: 20210717
  Serious: No
  Sender: FDA-Public Use
  Company Number: US-ALLERGAN-2025323US

PATIENT
  Age: 67 Year
  Sex: Female

DRUGS (5)
  1. LATISSE APPLICATOR [DEVICE] [Suspect]
     Active Substance: DEVICE
  2. LATISSE [Suspect]
     Active Substance: BIMATOPROST
     Indication: GROWTH OF EYELASHES
     Dosage: 1 GTT PER NEW PADDLE FOR EACH EYELID
     Route: 061
     Dates: start: 201912, end: 202001
  3. LATISSE [Suspect]
     Active Substance: BIMATOPROST
     Indication: GROWTH OF EYELASHES
     Dosage: 1 GTT PER NEW PADDLE FOR EACH EYELID
     Route: 061
     Dates: start: 20200323, end: 20200324
  4. LEVOTHYROXINE. [Concomitant]
     Active Substance: LEVOTHYROXINE
     Indication: HYPOTHYROIDISM
     Dosage: UNK
     Route: 048
  5. LATISSE APPLICATOR [DEVICE] [Suspect]
     Active Substance: DEVICE

REACTIONS (3)
  - Erythema of eyelid [Recovering/Resolving]
  - Ocular hyperaemia [Recovered/Resolved]
  - Lacrimation increased [Recovered/Resolved]

NARRATIVE: CASE EVENT DATE: 20200323
